FAERS Safety Report 6937256-7 (Version None)
Quarter: 2010Q3

REPORT INFORMATION
  Report Type: 
  Country: None (occurrence: None)
  Receive Date: 20100823
  Receipt Date: 20100813
  Transmission Date: 20110219
  Serious: Yes (Hospitalization)
  Sender: FDA-Public Use
  Company Number: A0877034A

PATIENT
  Age: 58 Year
  Sex: Female

DRUGS (5)
  1. ZOFRAN [Suspect]
     Indication: NAUSEA
     Dosage: 8MG PER DAY
     Route: 065
     Dates: end: 20100101
  2. TEGRETOL [Suspect]
     Route: 065
     Dates: end: 20100601
  3. PROZAC [Suspect]
     Indication: PRODUCT USED FOR UNKNOWN INDICATION
     Dosage: 80MG PER DAY
     Route: 065
     Dates: end: 20100601
  4. BETASERON [Suspect]
     Indication: MULTIPLE SCLEROSIS
     Dosage: 4Z ALTERNATE DAYS
     Route: 058
     Dates: start: 19940101, end: 20100601
  5. ACETAMINOPHEN [Concomitant]

REACTIONS (2)
  - BLOOD SODIUM DECREASED [None]
  - CONSTIPATION [None]
